FAERS Safety Report 18416445 (Version 1)
Quarter: 2020Q4

REPORT INFORMATION
  Report Type: Report from Study
  Country: ES (occurrence: ES)
  Receive Date: 20201022
  Receipt Date: 20201022
  Transmission Date: 20210114
  Serious: Yes (Hospitalization)
  Sender: FDA-Public Use
  Company Number: ES-MYLANLABS-2020M1088632

PATIENT
  Age: 79 Year
  Sex: Female

DRUGS (6)
  1. PENTOXIFILINA [Concomitant]
     Active Substance: PENTOXIFYLLINE
     Indication: MYELOPROLIFERATIVE NEOPLASM
     Dosage: 800 MILLIGRAM, QD
     Route: 048
     Dates: start: 20160118, end: 20191121
  2. FUROSEMIDA                         /00032601/ [Concomitant]
     Active Substance: FUROSEMIDE
     Indication: PERIPHERAL VENOUS DISEASE
     Dosage: 80 MILLIGRAM, QD
     Route: 048
     Dates: start: 20130726
  3. RISPERIDONE. [Interacting]
     Active Substance: RISPERIDONE
     Indication: SENILE DEMENTIA
     Dosage: 1 MILLIGRAM, QD
     Route: 048
     Dates: start: 20191001, end: 20191121
  4. ZOLPIDEM [Interacting]
     Active Substance: ZOLPIDEM TARTRATE
     Indication: INSOMNIA
     Dosage: 10 MILLIGRAM, QD
     Route: 048
     Dates: start: 20180323, end: 20191121
  5. TRAMADOL. [Suspect]
     Active Substance: TRAMADOL
     Indication: PAIN
     Dosage: 150 MILLIGRAM, QD
     Route: 048
     Dates: start: 20180614, end: 20191121
  6. ACIDO ACETIL SALICILICO [Concomitant]
     Active Substance: ASPIRIN
     Indication: CARDIAC VALVE PROSTHESIS USER
     Dosage: 100 MILLIGRAM, QD
     Route: 048
     Dates: start: 20151015

REACTIONS (3)
  - Somnolence [Recovered/Resolved]
  - Drug interaction [Unknown]
  - Confusional state [Recovered/Resolved]

NARRATIVE: CASE EVENT DATE: 201910
